FAERS Safety Report 5326502-1 (Version None)
Quarter: 2007Q2

REPORT INFORMATION
  Report Type: 
  Country: None (occurrence: None)
  Receive Date: 20070516
  Receipt Date: 20070509
  Transmission Date: 20071010
  Serious: Yes (Hospitalization, Disabling)
  Sender: FDA-Public Use
  Company Number: GB-ABBOTT-07P-167-0367979-00

PATIENT
  Age: 44 Year
  Sex: Male
  Weight: 76 kg

DRUGS (3)
  1. HUMIRA [Suspect]
     Indication: DRUG USE FOR UNKNOWN INDICATION
     Dates: start: 20050221
  2. METHOTREXATE [Concomitant]
     Indication: DRUG USE FOR UNKNOWN INDICATION
     Dates: start: 20070107
  3. INSULIN [Concomitant]
     Indication: DRUG USE FOR UNKNOWN INDICATION
     Dates: start: 19770101

REACTIONS (2)
  - C-REACTIVE PROTEIN INCREASED [None]
  - RHEUMATOID ARTHRITIS [None]
